FAERS Safety Report 22961431 (Version 2)
Quarter: 2023Q4

REPORT INFORMATION
  Report Type: Spontaneous
  Country: CN (occurrence: None)
  Receive Date: 20230920
  Receipt Date: 20231031
  Transmission Date: 20240110
  Serious: Yes (Other)
  Sender: FDA-Public Use
  Company Number: 2023A211476

PATIENT

DRUGS (1)
  1. SYMBICORT [Suspect]
     Active Substance: BUDESONIDE\FORMOTEROL FUMARATE DIHYDRATE
     Dosage: 160/ 4.5 UG/ INHALATION, 60 INHALATIONS/ VIAL, UNKNOWN UNKNOWN
     Route: 055

REACTIONS (3)
  - Condition aggravated [Unknown]
  - Device delivery system issue [Unknown]
  - Drug ineffective [Unknown]
